FAERS Safety Report 9516554 (Version 1)
Quarter: 2013Q1

REPORT INFORMATION
  Report Type: Spontaneous
  Country: US (occurrence: None)
  Receive Date: 20130305
  Receipt Date: 20130305
  Transmission Date: 20140127
  Serious: Yes (Other)
  Sender: FDA-Public Use
  Company Number: 163-21880-12120441

PATIENT
  Age: 100 Year
  Sex: Male

DRUGS (16)
  1. REVLIMID (LENALIDOMIDE) (CAPSULES) [Suspect]
     Indication: PLASMA CELL MYELOMA
     Dosage: 15 MG, 21 IN 21 D, PO
     Route: 048
     Dates: start: 20120925
  2. GEMFIBROZIL (GEMFIBROZIL) [Concomitant]
  3. IBUPROFEN (IBUPROFEN) [Concomitant]
  4. FISH OIL (FISH OIL) [Concomitant]
  5. POTASSIUM (POTASSIUM) [Concomitant]
  6. ACYCLOVIR (ACICLOVIR) (ACICLOVIR) [Concomitant]
  7. LEVOTHYROXIN (LEVOTHYROXINE SODIUM) [Concomitant]
  8. PRAMIPEXOLE (PRAMIPEXOLE) [Concomitant]
  9. OMEPRAZOLE (OMEPRAZOLE) [Concomitant]
  10. DEXAMETHASONE (DEXAMETHASONE) [Concomitant]
  11. VITAMIN D3 (COLECALCIFEROL) [Concomitant]
  12. ALPHA LIPOIC ACID [Concomitant]
  13. CLARITHROMYC [Concomitant]
  14. CYANOCOBAL [Concomitant]
  15. FOLIC ACID (FOLIC ACID) [Concomitant]
  16. CALCIUM CITRATE (CALCIUM CITRATE) [Concomitant]

REACTIONS (1)
  - Anaemia [None]
